FAERS Safety Report 7016000-1 (Version None)
Quarter: 2010Q3

REPORT INFORMATION
  Report Type: 
  Country: None (occurrence: None)
  Receive Date: 20100927
  Receipt Date: 20100920
  Transmission Date: 20110219
  Serious: Yes (Hospitalization, Other)
  Sender: FDA-Public Use
  Company Number: US-CEPHALON-2010005005

PATIENT
  Age: 36 Year
  Sex: Male

DRUGS (4)
  1. NUVIGIL [Suspect]
     Indication: SLEEP APNOEA SYNDROME
     Route: 048
     Dates: start: 20100623, end: 20100804
  2. NUVIGIL [Suspect]
     Indication: CIRCADIAN RHYTHM SLEEP DISORDER
  3. HALDOL [Suspect]
     Dates: start: 20100801
  4. DEPAKOTE [Suspect]
     Dates: start: 20100801

REACTIONS (18)
  - ABDOMINAL DISCOMFORT [None]
  - ABNORMAL BEHAVIOUR [None]
  - AGGRESSION [None]
  - AGITATION [None]
  - ANXIETY [None]
  - CHEST PAIN [None]
  - COGNITIVE DISORDER [None]
  - COMPLEX PARTIAL SEIZURES [None]
  - DELUSION [None]
  - DIZZINESS [None]
  - HALLUCINATION [None]
  - HEADACHE [None]
  - MANIA [None]
  - PERSONALITY CHANGE [None]
  - PSYCHIATRIC SYMPTOM [None]
  - SPEECH DISORDER [None]
  - STARING [None]
  - SUICIDE ATTEMPT [None]
